FAERS Safety Report 7043054-9 (Version None)
Quarter: 2010Q4

REPORT INFORMATION
  Report Type: 
  Country: None (occurrence: None)
  Receive Date: 20101013
  Receipt Date: 20101007
  Transmission Date: 20110411
  Serious: Yes (Disabling, Other)
  Sender: FDA-Public Use
  Company Number: US-MERCK-1010USA00848

PATIENT
  Sex: Female

DRUGS (1)
  1. FOSAMAX [Suspect]
     Route: 048
     Dates: start: 19980101, end: 20060101

REACTIONS (13)
  - CHOKING [None]
  - CONSTIPATION [None]
  - DYSPHAGIA [None]
  - GINGIVAL DISORDER [None]
  - HIP FRACTURE [None]
  - HYPOAESTHESIA [None]
  - OSTEONECROSIS [None]
  - OSTEONECROSIS OF JAW [None]
  - OSTEOPOROSIS [None]
  - PELVIC FRACTURE [None]
  - RIB FRACTURE [None]
  - TONGUE ULCERATION [None]
  - UPPER LIMB FRACTURE [None]
